FAERS Safety Report 10037166 (Version 2)
Quarter: 2014Q1

REPORT INFORMATION
  Report Type: Report from Study
  Country: US (occurrence: US)
  Receive Date: 20140326
  Receipt Date: 20140326
  Transmission Date: 20141002
  Serious: Yes (Hospitalization)
  Sender: FDA-Public Use
  Company Number: US-ALEXION-A201400705

PATIENT
  Sex: 0

DRUGS (8)
  1. SOLIRIS 300MG [Suspect]
     Indication: PAROXYSMAL NOCTURNAL HAEMOGLOBINURIA
     Dosage: 900 MG, Q2W
     Route: 042
     Dates: start: 20100714
  2. COUMADIN SODIUM [Concomitant]
     Dosage: UNK
     Dates: start: 20050101
  3. LASIX                              /00032601/ [Concomitant]
     Dosage: UNK
     Dates: start: 20050101
  4. FOLIC ACID [Concomitant]
     Dosage: UNK
     Dates: start: 20050101
  5. LOTREL [Concomitant]
     Dosage: UNK
     Dates: start: 20050101
  6. VITAMIN D NOS [Concomitant]
     Dosage: UNK
     Dates: start: 20050101
  7. VYTORIN [Concomitant]
     Indication: HYPERCHOLESTEROLAEMIA
     Dosage: UNK
     Route: 065
     Dates: start: 20050101
  8. KCL [Concomitant]
     Indication: PRODUCT USED FOR UNKNOWN INDICATION
     Dosage: UNK
     Route: 065
     Dates: start: 20050101

REACTIONS (2)
  - Unevaluable event [Unknown]
  - Fall [Recovering/Resolving]
